FAERS Safety Report 7743296-0 (Version None)
Quarter: 2011Q3

REPORT INFORMATION
  Report Type: 
  Country: None (occurrence: None)
  Receive Date: 20110825
  Receipt Date: 20110810
  Transmission Date: 20111222
  Serious: Yes (Hospitalization, Other)
  Sender: FDA-Public Use
  Company Number: 2010SP045138

PATIENT
  Age: 23 Year
  Sex: Female
  Weight: 97.5234 kg

DRUGS (1)
  1. NUVARING [Suspect]
     Indication: CONTRACEPTION
     Dates: start: 20040101, end: 20070110

REACTIONS (14)
  - PELVIC PAIN [None]
  - HEPATIC FUNCTION ABNORMAL [None]
  - IRRITABLE BOWEL SYNDROME [None]
  - OVARIAN CYST [None]
  - PULMONARY INFARCTION [None]
  - SIMPLEX VIRUS TEST POSITIVE [None]
  - URINARY TRACT INFECTION [None]
  - INFLAMMATORY BOWEL DISEASE [None]
  - VAGINITIS BACTERIAL [None]
  - HAEMOPTYSIS [None]
  - LUNG NEOPLASM [None]
  - HAEMATOCHEZIA [None]
  - UPPER RESPIRATORY TRACT INFECTION [None]
  - PULMONARY EMBOLISM [None]
